FAERS Safety Report 16932416 (Version 5)
Quarter: 2021Q3

REPORT INFORMATION
  Report Type: Report from Study
  Country: JP (occurrence: JP)
  Receive Date: 20191017
  Receipt Date: 20210824
  Transmission Date: 20211014
  Serious: Yes (Hospitalization, Other)
  Sender: FDA-Public Use
  Company Number: JP-ALEXION-A201915594

PATIENT
  Age: 66 Year
  Sex: Female
  Weight: 60 kg

DRUGS (17)
  1. SOLIRIS [Suspect]
     Active Substance: ECULIZUMAB
     Dosage: 1200 MG, Q2W
     Route: 042
     Dates: start: 20190208
  2. VENOGLOBULIN IH [Concomitant]
     Active Substance: HUMAN IMMUNOGLOBULIN G
     Indication: MYASTHENIA GRAVIS
     Dosage: 22500 MG, QD
     Route: 042
     Dates: start: 20200318, end: 20200322
  3. VENOGLOBULIN IH [Concomitant]
     Active Substance: HUMAN IMMUNOGLOBULIN G
     Dosage: 22500 MG, QD
     Route: 042
     Dates: start: 20201215, end: 20201219
  4. PREDNISOLONE. [Suspect]
     Active Substance: PREDNISOLONE
     Indication: MYASTHENIA GRAVIS
     Dosage: 20 MG, QD
     Route: 048
     Dates: start: 20160908, end: 20200110
  5. BAYASPIRIN [Concomitant]
     Active Substance: ASPIRIN
     Indication: SUBCLAVIAN ARTERY STENOSIS
     Dosage: 100 MG, QD
     Route: 048
     Dates: start: 20180301
  6. JANUVIA [Concomitant]
     Active Substance: SITAGLIPTIN PHOSPHATE
     Indication: DIABETES MELLITUS
     Dosage: 50 MG, QD
     Route: 048
  7. PREDNISOLONE. [Suspect]
     Active Substance: PREDNISOLONE
     Dosage: 18 MG, QD
     Route: 048
     Dates: start: 20200725
  8. HUMALOG [Concomitant]
     Active Substance: INSULIN LISPRO
     Indication: DIABETES MELLITUS
     Dosage: 44?48 IU/DAY, TID
     Route: 058
  9. SOLIRIS [Suspect]
     Active Substance: ECULIZUMAB
     Indication: MYASTHENIA GRAVIS
     Dosage: 900 MG, QW
     Route: 042
     Dates: start: 20190111, end: 20190201
  10. VENOGLOBULIN IH [Concomitant]
     Active Substance: HUMAN IMMUNOGLOBULIN G
     Dosage: 22500 MG, QD
     Route: 042
     Dates: start: 20200907, end: 20200911
  11. PREDNISOLONE. [Suspect]
     Active Substance: PREDNISOLONE
     Indication: BURSITIS
     Dosage: 19 MG, QD
     Route: 048
     Dates: start: 20200111, end: 20200724
  12. AZANIN [Suspect]
     Active Substance: AZATHIOPRINE
     Indication: BURSITIS
  13. ROSUVASTATIN. [Concomitant]
     Active Substance: ROSUVASTATIN
     Indication: DYSLIPIDAEMIA
     Dosage: 2.5 MG, QD
     Route: 048
  14. AZANIN [Suspect]
     Active Substance: AZATHIOPRINE
     Indication: MYASTHENIA GRAVIS
     Dosage: 50 MG, BID
     Route: 048
     Dates: start: 20160711
  15. MESTINON [Concomitant]
     Active Substance: PYRIDOSTIGMINE BROMIDE
     Indication: MYASTHENIA GRAVIS
     Dosage: 60 MG, TID
     Route: 048
     Dates: start: 20160813
  16. LANTUS [Concomitant]
     Active Substance: INSULIN GLARGINE
     Indication: DIABETES MELLITUS
     Dosage: 7?9 IU, QD
     Route: 058
  17. VENOGLOBULIN IH [Concomitant]
     Active Substance: HUMAN IMMUNOGLOBULIN G
     Dosage: 22500 MG, QD
     Route: 042
     Dates: start: 20200615, end: 20200619

REACTIONS (8)
  - Escherichia urinary tract infection [Unknown]
  - Myelodysplastic syndrome [Not Recovered/Not Resolved]
  - Escherichia bacteraemia [Unknown]
  - Cellulitis [Recovered/Resolved]
  - Bursitis infective staphylococcal [Recovered/Resolved]
  - Cardiac failure [Recovering/Resolving]
  - Myasthenia gravis [Recovering/Resolving]
  - Gastrointestinal haemorrhage [Recovering/Resolving]

NARRATIVE: CASE EVENT DATE: 201904
